FAERS Safety Report 8439005 (Version 2)
Quarter: 2013Q2

REPORT INFORMATION
  Report Type: Spontaneous
  Country: US (occurrence: None)
  Receive Date: 20120104
  Receipt Date: 20120508
  Transmission Date: 20140414
  Serious: Yes (Other)
  Sender: FDA-Public Use
  Company Number: 2011HGS-002869

PATIENT
  Age: 50 Year
  Sex: Female
  Weight: 43.09 kg

DRUGS (4)
  1. BENLYSTA [Suspect]
     Indication: SYSTEMIC LUPUS ERYTHEMATOSUS
     Dosage: 1 IN 14 D, INTRAVENOUS DRIP
     Route: 041
     Dates: start: 20111128
  2. PREDNISONE [Concomitant]
  3. ZYPREXA [Concomitant]
  4. LEXAPRO (ESCITALOPRAM OXALATE)(ESCITALOPRAM OXALATE) [Concomitant]

REACTIONS (3)
  - PRURITUS [None]
  - URTICARIA [None]
  - HEADACHE [None]
